FAERS Safety Report 18171519 (Version 1)
Quarter: 2020Q3

REPORT INFORMATION
  Report Type: Spontaneous
  Country: TW (occurrence: TW)
  Receive Date: 20200820
  Receipt Date: 20200820
  Transmission Date: 20201103
  Serious: Yes (Death)
  Sender: FDA-Public Use
  Company Number: TW-BEH-2020121250

PATIENT
  Age: 70 Year
  Sex: Male

DRUGS (1)
  1. HUMAN IMMUNOGLOBULIN (INN) [Suspect]
     Active Substance: HUMAN IMMUNOGLOBULIN G
     Indication: SEVERE FEVER WITH THROMBOCYTOPENIA SYNDROME
     Dosage: UNK
     Route: 042

REACTIONS (2)
  - Product use in unapproved indication [Fatal]
  - Drug ineffective for unapproved indication [Fatal]
